FAERS Safety Report 7473962-6 (Version None)
Quarter: 2011Q2

REPORT INFORMATION
  Report Type: 
  Country: None (occurrence: None)
  Receive Date: 20110511
  Receipt Date: 20081001
  Transmission Date: 20111010
  Serious: Yes (Hospitalization, Other)
  Sender: FDA-Public Use
  Company Number: US-BAYER-2011-008074

PATIENT
  Age: 62 Year
  Sex: Male
  Weight: 99 kg

DRUGS (34)
  1. VANCOMYCIN [Concomitant]
  2. DIOVAN [Concomitant]
     Dosage: 106/12.5 MG, QD
  3. AVANDIA [Concomitant]
     Dosage: 8 MG, QD
  4. ANCEF [Concomitant]
     Dosage: 1 G, UNK
     Route: 042
     Dates: start: 20031021
  5. INSULIN REGULAR [INSULIN PORCINE] [Concomitant]
     Dosage: UNK
     Dates: start: 20031021
  6. BACITRACIN [Concomitant]
     Dosage: 10000 U/600CC/0.9 NACL, UNK
     Route: 042
     Dates: start: 20031021
  7. ACETYLSALICYLIC ACID SRT [Concomitant]
     Dosage: 325 MG, QD
  8. CONTRAST MEDIA [Concomitant]
  9. ATENOLOL [Concomitant]
     Dosage: 100 MG, QAM
     Dates: start: 20050101
  10. NEXIUM [Concomitant]
     Dosage: 40 MG, QD
  11. PROTAMINE SULFATE [Concomitant]
     Dosage: 250 MG, X2
     Dates: start: 20031021
  12. NITROSTAT [Concomitant]
     Indication: CHEST PAIN
     Dosage: 0.4 MG, UNK
     Dates: start: 20030101
  13. DIGOXIN [Concomitant]
     Dosage: 0.25 MG, QD
     Dates: start: 20050101
  14. PRINZIDE [Concomitant]
     Dosage: 12.5/20 MG, UNK
  15. IBUPROFEN (ADVIL) [Concomitant]
     Dosage: UNK
     Dates: start: 19990101
  16. HEPARIN [Concomitant]
     Dosage: 30 ML, UNK
     Dates: start: 20031021
  17. TRASYLOL [Suspect]
     Indication: CORONARY ARTERY BYPASS
     Dosage: UNK
     Route: 042
     Dates: start: 20031021
  18. LISINOPRIL [Concomitant]
  19. VANCOMYCIN [Concomitant]
     Dosage: 500 MG, UNK
     Route: 042
     Dates: start: 20031021
  20. TERAZOSIN HCL [Concomitant]
     Dosage: UNK
     Dates: start: 20030101
  21. LIDOCAINE [Concomitant]
     Dosage: 2 G/500CC/D5W, DRIP
     Route: 042
     Dates: start: 20031021
  22. PROTAMINE SULFATE [Concomitant]
     Dosage: 400 MG, UNK
     Dates: start: 20031021
  23. ISOLYTE [Concomitant]
     Dosage: 600 ML, UNK
     Route: 042
     Dates: start: 20031021
  24. GENTAMICIN [Concomitant]
     Dosage: 160 MG/1000CC/0.9 NACL, UNK
     Dates: start: 20031021
  25. MANNITOL [Concomitant]
     Dosage: UNK
     Dates: start: 20031021
  26. GARAMYCIN [Concomitant]
     Dosage: 80 ML, X2
     Route: 042
  27. FURANTHRIL [FUROSEMIDE] [Concomitant]
     Dosage: 40 MG, QD
     Dates: start: 20000101
  28. GLUCOPHAGE [Concomitant]
     Dosage: 1000 MG, BID
  29. LASIX [Concomitant]
     Dosage: 20 MG, UNK
     Route: 042
     Dates: start: 20031021
  30. GARAMYCIN [Concomitant]
  31. LIPITOR [Concomitant]
     Dosage: 40 MG, QD
     Dates: start: 20030101
  32. ATENOLOL [Concomitant]
     Indication: TACHYCARDIA
     Dosage: 75 MG, QPM
     Dates: start: 20050101
  33. ADRENALIN [Concomitant]
     Dosage: 1:10000 UNK, UNK
     Route: 042
     Dates: start: 20031021
  34. ALBUMINAR [ALBUMEN] [Concomitant]
     Dosage: 25% 50CC, UNK
     Route: 042
     Dates: start: 20031021

REACTIONS (7)
  - PAIN [None]
  - EMOTIONAL DISTRESS [None]
  - ANXIETY [None]
  - RENAL FAILURE [None]
  - INJURY [None]
  - STRESS [None]
  - UNEVALUABLE EVENT [None]
